FAERS Safety Report 5534051-0 (Version None)
Quarter: 2007Q4

REPORT INFORMATION
  Report Type: 
  Country: None (occurrence: None)
  Receive Date: 20071129
  Receipt Date: 20071129
  Transmission Date: 20080405
  Serious: Yes (Disabling)
  Sender: FDA-Public Use
  Company Number: None

PATIENT
  Age: 63 Year
  Sex: Male
  Weight: 46.2669 kg

DRUGS (2)
  1. ERBITUX [Suspect]
     Indication: METASTASES TO BONE
     Dosage: 588MG OVER 2HRS IV
     Route: 042
     Dates: start: 20071127, end: 20071127
  2. ERBITUX [Suspect]
     Indication: TONGUE NEOPLASM MALIGNANT STAGE UNSPECIFIED
     Dosage: 588MG OVER 2HRS IV
     Route: 042
     Dates: start: 20071127, end: 20071127

REACTIONS (4)
  - AGITATION [None]
  - BLOOD PRESSURE DECREASED [None]
  - HEART RATE INCREASED [None]
  - RESTLESSNESS [None]
